FAERS Safety Report 8584904-4 (Version None)
Quarter: 2012Q3

REPORT INFORMATION
  Report Type: 
  Country: None (occurrence: None)
  Receive Date: 20120810
  Receipt Date: 20120807
  Transmission Date: 20120928
  Serious: No
  Sender: FDA-Public Use
  Company Number: US-PFIZER INC-2012192386

PATIENT
  Age: 66 Year
  Sex: Female
  Weight: 76.19 kg

DRUGS (6)
  1. GLYBURIDE [Concomitant]
     Indication: DIABETES MELLITUS
     Dosage: 5 MG, 2X/DAY
  2. PLAVIX [Concomitant]
     Indication: CARDIAC DISORDER
     Dosage: 75 MG, 1X/DAY
  3. PRAVASTATIN [Concomitant]
     Indication: BLOOD CHOLESTEROL INCREASED
     Dosage: 10 MG, 1X/DAY
  4. METOPROLOL [Concomitant]
     Indication: HYPERTENSION
     Dosage: 25 MG, 2X/DAY
  5. NAPROXEN [Concomitant]
     Dosage: UNK
  6. PREMARIN [Suspect]
     Indication: ATROPHIC VULVOVAGINITIS
     Dosage: UNK, 1X/DAY
     Route: 067
     Dates: start: 20120627, end: 20120630

REACTIONS (3)
  - VULVOVAGINAL PAIN [None]
  - VULVOVAGINAL DISCOMFORT [None]
  - VULVOVAGINAL BURNING SENSATION [None]
